FAERS Safety Report 4437365-0 (Version None)
Quarter: 2004Q3

REPORT INFORMATION
  Report Type: 
  Country: None (occurrence: None)
  Receive Date: 20040726
  Receipt Date: 20040329
  Transmission Date: 20050211
  Serious: No
  Sender: FDA-Public Use
  Company Number: USA040363532

PATIENT
  Age: 81 Year
  Sex: Female

DRUGS (1)
  1. FORTEO [Suspect]
     Indication: BONE DISORDER
     Dates: start: 20040101, end: 20040324

REACTIONS (4)
  - DIZZINESS [None]
  - FATIGUE [None]
  - MUSCLE FATIGUE [None]
  - NAUSEA [None]
